FAERS Safety Report 5702376-1 (Version None)
Quarter: 2008Q2

REPORT INFORMATION
  Report Type: 
  Country: None (occurrence: None)
  Receive Date: 20080411
  Receipt Date: 20080409
  Transmission Date: 20081010
  Serious: Yes (Other)
  Sender: FDA-Public Use
  Company Number: US-ASTRAZENECA-2008UW07192

PATIENT
  Age: 70 Year
  Sex: Female

DRUGS (5)
  1. CRESTOR [Suspect]
     Indication: BLOOD CHOLESTEROL INCREASED
     Route: 048
     Dates: start: 20070101, end: 20070101
  2. CRESTOR [Suspect]
     Route: 048
     Dates: start: 20070101, end: 20080301
  3. ASPIRIN [Concomitant]
  4. PREMARIN [Concomitant]
  5. CALCIUM [Concomitant]

REACTIONS (3)
  - GAIT DISTURBANCE [None]
  - MUSCLE SPASMS [None]
  - PAIN [None]
